FAERS Safety Report 8015869-1 (Version None)
Quarter: 2011Q4

REPORT INFORMATION
  Report Type: 
  Country: None (occurrence: None)
  Receive Date: 20111223
  Receipt Date: 20111216
  Transmission Date: 20120403
  Serious: Yes (Other)
  Sender: FDA-Public Use
  Company Number: DKLU1075570

PATIENT
  Age: 35 Year
  Sex: Female

DRUGS (6)
  1. ANTIEPILEPTICS (ANTIEPILEPTICS) [Suspect]
     Indication: CONVULSION
     Dosage: 50 MG MILLIGRAM(S), 2 IN 1 D
  2. CARBAMAZEPINE [Suspect]
     Indication: CONVULSION
     Dosage: 200 MG MILLIGRAM(S), 2 IN 1 D
  3. ONFI [Suspect]
     Indication: CONVULSION
     Dosage: 10 MG MILLIGRAM(S), 1 IN 1 D
  4. LAMOTRIGINE [Concomitant]
  5. TOPIRAMATE [Suspect]
     Indication: CONVULSION
  6. KEPPRA [Suspect]
     Indication: CONVULSION
     Dosage: 1500 MG MILLIGRAM(S), 2 IN 1 D

REACTIONS (13)
  - AURA [None]
  - DRUG HYPERSENSITIVITY [None]
  - TEARFULNESS [None]
  - MEMORY IMPAIRMENT [None]
  - FATIGUE [None]
  - URINARY INCONTINENCE [None]
  - PARTNER STRESS [None]
  - DIPLOPIA [None]
  - SLOW SPEECH [None]
  - ANXIETY [None]
  - SELF ESTEEM DECREASED [None]
  - STEVENS-JOHNSON SYNDROME [None]
  - IMPAIRED WORK ABILITY [None]
